FAERS Safety Report 12447651 (Version 1)
Quarter: 2016Q2

REPORT INFORMATION
  Report Type: Spontaneous
  Country: US (occurrence: None)
  Receive Date: 20160607
  Receipt Date: 20160607
  Transmission Date: 20160815
  Serious: No
  Sender: FDA-Public Use
  Company Number: None

PATIENT
  Age: 60 Year
  Sex: Female

DRUGS (5)
  1. XGEVA [Concomitant]
     Active Substance: DENOSUMAB
  2. DEXAMETHASONE. [Concomitant]
     Active Substance: DEXAMETHASONE
  3. FOLIC ACID. [Concomitant]
     Active Substance: FOLIC ACID
  4. IBRANCE [Suspect]
     Active Substance: PALBOCICLIB
     Indication: BREAST CANCER
     Route: 048
     Dates: start: 201505, end: 201606
  5. EXEMESTANE. [Concomitant]
     Active Substance: EXEMESTANE

REACTIONS (2)
  - Drug ineffective [None]
  - Therapy cessation [None]

NARRATIVE: CASE EVENT DATE: 201605
